FAERS Safety Report 6069488-7 (Version None)
Quarter: 2009Q1

REPORT INFORMATION
  Report Type: 
  Country: None (occurrence: None)
  Receive Date: 20090206
  Receipt Date: 20090127
  Transmission Date: 20090719
  Serious: Yes (Other)
  Sender: FDA-Public Use
  Company Number: US-TYCO HEALTHCARE/MALLINCKRODT-T200900153

PATIENT

DRUGS (5)
  1. OPTIMARK [Suspect]
     Indication: ANGIOGRAM
     Dosage: 25 ML (CC), UNK
     Route: 042
     Dates: start: 20030805, end: 20030805
  2. OMNISCAN [Suspect]
     Indication: NUCLEAR MAGNETIC RESONANCE IMAGING
     Dosage: 20 ML (CC), UNK
     Route: 042
     Dates: start: 20030221, end: 20030221
  3. OMNISCAN [Suspect]
     Indication: NUCLEAR MAGNETIC RESONANCE IMAGING BRAIN
     Dosage: 10 ML (CC), UNK
     Route: 042
     Dates: start: 20040108, end: 20040108
  4. OMNISCAN [Suspect]
     Dosage: 20 ML (CC), UNK
     Route: 042
     Dates: start: 20040121, end: 20040121
  5. MAGNEVIST [Suspect]
     Indication: NUCLEAR MAGNETIC RESONANCE IMAGING
     Dosage: 15 ML (CC), UNK
     Route: 042
     Dates: start: 20051005, end: 20051005

REACTIONS (1)
  - NEPHROGENIC SYSTEMIC FIBROSIS [None]
